FAERS Safety Report 7014886-8 (Version None)
Quarter: 2010Q3

REPORT INFORMATION
  Report Type: 
  Country: None (occurrence: None)
  Receive Date: 20100927
  Receipt Date: 20100728
  Transmission Date: 20110219
  Serious: No
  Sender: FDA-Public Use
  Company Number: US-ASTRAZENECA-2007UW21041

PATIENT
  Age: 59 Year
  Sex: Female
  Weight: 80.7 kg

DRUGS (6)
  1. ARIMIDEX [Suspect]
     Indication: BREAST CANCER FEMALE
     Route: 048
     Dates: start: 20040401
  2. MULTI-VITAMIN [Concomitant]
  3. CALCIUM PLUS D [Concomitant]
  4. FISH OIL [Concomitant]
  5. ASPIRIN [Concomitant]
  6. FOSAMAX [Concomitant]

REACTIONS (5)
  - AGGRESSION [None]
  - DEPRESSION [None]
  - OSTEOPENIA [None]
  - PRURITUS [None]
  - WEIGHT DECREASED [None]
